FAERS Safety Report 6552440-2 (Version None)
Quarter: 2010Q1

REPORT INFORMATION
  Report Type: 
  Country: None (occurrence: None)
  Receive Date: 20100126
  Receipt Date: 20100119
  Transmission Date: 20100710
  Serious: Yes (Hospitalization)
  Sender: FDA-Public Use
  Company Number: FR-WYE-G05275010

PATIENT
  Age: 19 Year
  Sex: Female

DRUGS (4)
  1. ADVIL [Suspect]
     Indication: BRONCHITIS
     Dosage: 1 TABLET (STRENGTH UNKNOWN)
     Route: 048
     Dates: start: 20081215, end: 20081215
  2. ADVIL [Suspect]
     Dosage: UNKNOWN
     Route: 048
     Dates: start: 20090312, end: 20090312
  3. HELICIDINE [Concomitant]
     Dosage: UNKNOWN
     Route: 048
     Dates: start: 20081215
  4. STREPSILS [Suspect]
     Dosage: SEVERAL TABLETS (ALMOST THE WHOLE PACKAGE CONTENT)
     Route: 048
     Dates: start: 20081215, end: 20081215

REACTIONS (3)
  - ANAPHYLACTIC REACTION [None]
  - INTENTIONAL OVERDOSE [None]
  - VOMITING [None]
